FAERS Safety Report 5339047-X (Version None)
Quarter: 2007Q2

REPORT INFORMATION
  Report Type: 
  Country: None (occurrence: None)
  Receive Date: 20070530
  Receipt Date: 20070518
  Transmission Date: 20071010
  Serious: Yes (Death)
  Sender: FDA-Public Use
  Company Number: KR-PFIZER INC-2007035620

PATIENT
  Sex: Male
  Weight: 81 kg

DRUGS (3)
  1. ZITHROMAX [Suspect]
     Indication: PNEUMONIA
     Route: 042
     Dates: start: 20061122, end: 20061124
  2. AZITHROMYCIN [Concomitant]
     Route: 048
     Dates: start: 20061125, end: 20061127
  3. FLUMARIN [Concomitant]
     Route: 042
     Dates: start: 20061122, end: 20061127

REACTIONS (2)
  - PNEUMONIA [None]
  - PULMONARY TUBERCULOSIS [None]
